FAERS Safety Report 18603135 (Version 1)
Quarter: 2020Q4

REPORT INFORMATION
  Report Type: Spontaneous
  Country: US (occurrence: US)
  Receive Date: 20201210
  Receipt Date: 20201210
  Transmission Date: 20210114
  Serious: No
  Sender: FDA-Public Use
  Company Number: US-PURDUE-USA-2020-0149702

PATIENT
  Sex: Female

DRUGS (4)
  1. HYDROMORPHONE TABLETS [Suspect]
     Active Substance: HYDROMORPHONE
     Indication: PAIN
     Dosage: 2 MG, Q6H
     Route: 048
     Dates: start: 20191203, end: 20191220
  2. HYDROMORPHONE TABLETS [Suspect]
     Active Substance: HYDROMORPHONE
     Dosage: 2X2 MG, Q6H
     Route: 048
     Dates: start: 20191220, end: 20200101
  3. HYDROMORPHONE TABLETS [Suspect]
     Active Substance: HYDROMORPHONE
     Dosage: 3X2 MG, Q6H
     Route: 048
     Dates: start: 20200101, end: 20200108
  4. HYDROMORPHONE TABLETS [Suspect]
     Active Substance: HYDROMORPHONE
     Dosage: 4X2 MG, Q6H
     Route: 048
     Dates: start: 20200108

REACTIONS (2)
  - Drug ineffective [Unknown]
  - Euphoric mood [Unknown]

NARRATIVE: CASE EVENT DATE: 20191204
